FAERS Safety Report 8624167-4 (Version None)
Quarter: 2012Q3

REPORT INFORMATION
  Report Type: 
  Country: None (occurrence: None)
  Receive Date: 20120824
  Receipt Date: 20120824
  Transmission Date: 20120928
  Serious: No
  Sender: FDA-Public Use
  Company Number: None

PATIENT
  Age: 55 Year
  Sex: Male

DRUGS (2)
  1. RIBAVIRIN [Suspect]
     Indication: HEPATITIS C
     Dosage: RIBAVIRIN 600MG BID PO
     Route: 048
     Dates: start: 20120727
  2. PEGASYS [Suspect]
     Indication: HEPATITIS C
     Dosage: PEGASYS 180MG QW SQ
     Route: 058
     Dates: start: 20120727

REACTIONS (1)
  - CONSTIPATION [None]
